FAERS Safety Report 10812129 (Version 1)
Quarter: 2015Q1

REPORT INFORMATION
  Report Type: Spontaneous
  Country: NC (occurrence: NC)
  Receive Date: 20150218
  Receipt Date: 20150218
  Transmission Date: 20150721
  Serious: Yes (Other)
  Sender: FDA-Public Use
  Company Number: NC-JNJFOC-20141218494

PATIENT
  Age: 37 Year
  Sex: Male

DRUGS (2)
  1. DAKTARIN [Suspect]
     Active Substance: MICONAZOLE NITRATE
     Route: 048
  2. DAKTARIN [Suspect]
     Active Substance: MICONAZOLE NITRATE
     Indication: ORAL FUNGAL INFECTION
     Route: 048
     Dates: start: 20141208, end: 20141210

REACTIONS (4)
  - Arrhythmia [Unknown]
  - Generalised erythema [Unknown]
  - Rash [Unknown]
  - Nausea [Unknown]
